FAERS Safety Report 21460846 (Version 1)
Quarter: 2022Q4

REPORT INFORMATION
  Report Type: Report from Study
  Country: US (occurrence: US)
  Receive Date: 20221015
  Receipt Date: 20221015
  Transmission Date: 20230112
  Serious: No
  Sender: FDA-Public Use
  Company Number: US-ABBVIE-4142813

PATIENT
  Age: 29 Year
  Sex: Female
  Weight: 97.522 kg

DRUGS (4)
  1. HUMIRA [Suspect]
     Active Substance: ADALIMUMAB
     Indication: Crohn^s disease
     Dosage: FORM STRENGTH 80 MG
     Route: 058
     Dates: start: 20220915
  2. HUMIRA [Suspect]
     Active Substance: ADALIMUMAB
     Dosage: FORM STRENGTH 80 MG
     Route: 058
     Dates: start: 20220902, end: 20220902
  3. HUMIRA [Suspect]
     Active Substance: ADALIMUMAB
     Dosage: DRUG STARTED AND ENDED IN UNKNOWN DATE OF 2015?FORM STRENGTH 80 MG
     Route: 058
  4. MODERNA COVID-19 VACCINE [Concomitant]
     Active Substance: ELASOMERAN
     Indication: COVID-19 immunisation
     Dosage: ON UNKNOWN DATE IN  2021 PATIENT HAD COVID-19 VACCINE
     Route: 030

REACTIONS (3)
  - Burning sensation [Unknown]
  - Wrong technique in product usage process [Not Recovered/Not Resolved]
  - Crohn^s disease [Not Recovered/Not Resolved]

NARRATIVE: CASE EVENT DATE: 20220915
